FAERS Safety Report 4434277-3 (Version None)
Quarter: 2004Q3

REPORT INFORMATION
  Report Type: 
  Country: None (occurrence: None)
  Receive Date: 20040825
  Receipt Date: 20040817
  Transmission Date: 20050211
  Serious: Yes (Life-Threatening, Hospitalization)
  Sender: FDA-Public Use
  Company Number: DE_040814079

PATIENT
  Age: 43 Year
  Sex: Female

DRUGS (3)
  1. ZYPREXA [Suspect]
     Indication: DELUSIONAL DISORDER, PERSECUTORY TYPE
     Dosage: 10 MG/2 DAY
     Dates: start: 20040408, end: 20040422
  2. LORAZEPAM [Concomitant]
  3. LEVOTHYROXINE SODIUM [Concomitant]

REACTIONS (7)
  - CARDIAC ARREST [None]
  - CHOREA [None]
  - CIRCULATORY COLLAPSE [None]
  - COGNITIVE DISORDER [None]
  - PSYCHOTIC DISORDER [None]
  - TACHYARRHYTHMIA [None]
  - TREATMENT NONCOMPLIANCE [None]
